FAERS Safety Report 13909600 (Version 3)
Quarter: 2017Q4

REPORT INFORMATION
  Report Type: Spontaneous
  Country: US (occurrence: US)
  Receive Date: 20170828
  Receipt Date: 20171026
  Transmission Date: 20180320
  Serious: No
  Sender: FDA-Public Use
  Company Number: US-PFIZER INC-2017369908

PATIENT
  Age: 13 Year
  Sex: Male
  Weight: 44.45 kg

DRUGS (1)
  1. QUILLIVANT XR [Suspect]
     Active Substance: METHYLPHENIDATE HYDROCHLORIDE
     Indication: ATTENTION DEFICIT/HYPERACTIVITY DISORDER
     Dosage: 5CC LIQUID IN THE MORNING AND 3CC LIQUID AT NOON
     Route: 048

REACTIONS (4)
  - Product taste abnormal [Unknown]
  - Product quality issue [Unknown]
  - Poor quality drug administered [Unknown]
  - Dysgeusia [Unknown]

NARRATIVE: CASE EVENT DATE: 20170818
